FAERS Safety Report 9834878 (Version 2)
Quarter: 2014Q1

REPORT INFORMATION
  Report Type: Spontaneous
  Country: US (occurrence: US)
  Receive Date: 20140122
  Receipt Date: 20140124
  Transmission Date: 20141002
  Serious: Yes (Death, Hospitalization)
  Sender: FDA-Public Use
  Company Number: US-GLAXOSMITHKLINE-A1056576A

PATIENT
  Age: 62 Year
  Sex: Female

DRUGS (11)
  1. ARIXTRA [Suspect]
     Indication: THROMBOSIS
     Dosage: 7.5MG PER DAY
     Route: 042
     Dates: start: 20131216
  2. BACTRIM [Concomitant]
  3. METFORMIN [Concomitant]
  4. CITALOPRAM [Concomitant]
  5. METOPROLOL [Concomitant]
  6. PREDNISONE [Concomitant]
  7. POTASSIUM CHLORIDE [Concomitant]
  8. LORATADINE [Concomitant]
  9. RANITIDINE [Concomitant]
  10. PRAVASTATIN [Concomitant]
  11. INSULIN [Concomitant]

REACTIONS (7)
  - Death [Fatal]
  - Resuscitation [Unknown]
  - Unresponsive to stimuli [Unknown]
  - Autopsy [Unknown]
  - Injection site pain [Unknown]
  - Application site reaction [Unknown]
  - Pulse abnormal [Unknown]
